FAERS Safety Report 15636403 (Version 1)
Quarter: 2018Q4

REPORT INFORMATION
  Report Type: Spontaneous
  Country: AU (occurrence: AU)
  Receive Date: 20181120
  Receipt Date: 20181120
  Transmission Date: 20190205
  Serious: Yes (Hospitalization, Other)
  Sender: FDA-Public Use
  Company Number: AU-ASTELLAS-2018US048865

PATIENT
  Age: 29 Year
  Sex: Male

DRUGS (4)
  1. TACROLIMUS. [Suspect]
     Active Substance: TACROLIMUS
     Indication: HEART TRANSPLANT
     Route: 048
  2. MYCOPHENOLATE [Concomitant]
     Active Substance: MYCOPHENOLIC ACID
     Indication: HEART TRANSPLANT
     Route: 065
  3. EVEROLIMUS. [Concomitant]
     Active Substance: EVEROLIMUS
     Indication: HEART TRANSPLANT
     Route: 065
  4. PREDNISOLONE. [Concomitant]
     Active Substance: PREDNISOLONE
     Indication: HEART TRANSPLANT
     Route: 065

REACTIONS (5)
  - Pulmonary embolism [Recovered/Resolved]
  - Lemierre syndrome [Recovered/Resolved]
  - Abscess [Recovered/Resolved]
  - Venous thrombosis [Recovered/Resolved]
  - Staphylococcal infection [Recovered/Resolved]
